FAERS Safety Report 4871065-8 (Version None)
Quarter: 2005Q4

REPORT INFORMATION
  Report Type: 
  Country: None (occurrence: None)
  Receive Date: 20051229
  Receipt Date: 20051220
  Transmission Date: 20060501
  Serious: Yes (Death)
  Sender: FDA-Public Use
  Company Number: 200510637BYL

PATIENT
  Age: 87 Year
  Sex: Male

DRUGS (4)
  1. CIPROXAN (CIPROFLOXACIN) [Suspect]
     Indication: PNEUMONIA
     Dosage: 600 MG, TOTAL DAILY, INTRAVENOUS DRIP
     Route: 041
     Dates: start: 20050121, end: 20050122
  2. SIGMART [Concomitant]
  3. CEROCRAL [Concomitant]
  4. MUCOSTA [Concomitant]

REACTIONS (3)
  - CARDIAC FAILURE [None]
  - CONDITION AGGRAVATED [None]
  - PYREXIA [None]
